FAERS Safety Report 7402640-4 (Version None)
Quarter: 2011Q2

REPORT INFORMATION
  Report Type: 
  Country: None (occurrence: None)
  Receive Date: 20110408
  Receipt Date: 20110406
  Transmission Date: 20111010
  Serious: No
  Sender: FDA-Public Use
  Company Number: US-PFIZER INC-2011076611

PATIENT
  Sex: Female

DRUGS (3)
  1. VENTOLIN [Concomitant]
     Indication: RESPIRATORY DISORDER
     Dosage: UNK
  2. AROMASIN [Suspect]
     Indication: BREAST CANCER FEMALE
     Dosage: 25 MG, 1X/DAY
     Route: 048
     Dates: start: 20101025
  3. FORADIL [Concomitant]
     Indication: RESPIRATORY DISORDER
     Dosage: 12 UG, 2X/DAY

REACTIONS (1)
  - HOT FLUSH [None]
